FAERS Safety Report 17000941 (Version 1)
Quarter: 2019Q4

REPORT INFORMATION
  Report Type: Spontaneous
  Country: CA (occurrence: CA)
  Receive Date: 20191106
  Receipt Date: 20191106
  Transmission Date: 20200122
  Serious: Yes (Death)
  Sender: FDA-Public Use
  Company Number: CA-ALLERGAN-1944511US

PATIENT

DRUGS (2)
  1. BOTOX [Suspect]
     Active Substance: ONABOTULINUMTOXINA
     Indication: HYPERTONIC BLADDER
  2. BOTOX [Suspect]
     Active Substance: ONABOTULINUMTOXINA
     Indication: SPINAL CORD INJURY
     Dosage: 100 UNITS, UNK
     Route: 030

REACTIONS (2)
  - Off label use [Unknown]
  - Pneumonia [Fatal]
